FAERS Safety Report 4585828-X (Version None)
Quarter: 2005Q1

REPORT INFORMATION
  Report Type: 
  Country: None (occurrence: None)
  Receive Date: 20050217
  Receipt Date: 20050105
  Transmission Date: 20050727
  Serious: Yes (Hospitalization)
  Sender: FDA-Public Use
  Company Number: FR-SANOFI-SYNTHELABO-A02200500037

PATIENT
  Age: 29 Year
  Sex: Female

DRUGS (3)
  1. IMOCUR [Concomitant]
     Dosage: UNK
     Route: 048
  2. PLAQUENIL [Suspect]
     Indication: SYSTEMIC LUPUS ERYTHEMATOSUS
     Route: 048
     Dates: start: 20041201, end: 20041209
  3. CORTANCYL [Concomitant]
     Route: 048
     Dates: start: 20040815, end: 20041201

REACTIONS (6)
  - ABDOMINAL PAIN [None]
  - CYTOMEGALOVIRUS TEST POSITIVE [None]
  - DIARRHOEA [None]
  - LYMPHOPENIA [None]
  - PYREXIA [None]
  - URTICARIA [None]
